FAERS Safety Report 12329580 (Version 7)
Quarter: 2018Q4

REPORT INFORMATION
  Report Type: Report from Study
  Country: None (occurrence: ZA)
  Receive Date: 20160503
  Receipt Date: 20181125
  Transmission Date: 20190204
  Serious: Yes (Hospitalization)
  Sender: FDA-Public Use
  Company Number: ZA-ABBVIE-16K-143-1614711-00

PATIENT
  Sex: Female
  Weight: 67 kg

DRUGS (4)
  1. FOLIC ACID. [Concomitant]
     Active Substance: FOLIC ACID
     Indication: PRODUCT USED FOR UNKNOWN INDICATION
  2. HUMIRA [Suspect]
     Active Substance: ADALIMUMAB
     Indication: PSORIATIC ARTHROPATHY
     Route: 058
     Dates: start: 2012, end: 20160408
  3. METHOTREXATE. [Concomitant]
     Active Substance: METHOTREXATE
     Indication: PRODUCT USED FOR UNKNOWN INDICATION
  4. HUMIRA [Suspect]
     Active Substance: ADALIMUMAB
     Route: 058

REACTIONS (13)
  - Cervical cyst [Unknown]
  - Photodermatosis [Unknown]
  - Basal cell carcinoma [Recovered/Resolved]
  - Menstruation irregular [Not Recovered/Not Resolved]
  - Anaesthetic complication [Unknown]
  - Adenomyosis [Unknown]
  - Uterine leiomyoma [Recovering/Resolving]
  - Uterine neoplasm [Unknown]
  - Ovarian cyst [Not Recovered/Not Resolved]
  - Haemoglobin decreased [Not Recovered/Not Resolved]
  - Colonoscopy abnormal [Recovered/Resolved]
  - Endometrial disorder [Unknown]
  - Muscle spasms [Unknown]

NARRATIVE: CASE EVENT DATE: 2015
